FAERS Safety Report 4273150-0 (Version None)
Quarter: 2004Q1

REPORT INFORMATION
  Report Type: 
  Country: None (occurrence: None)
  Receive Date: 20040116
  Receipt Date: 20040113
  Transmission Date: 20041129
  Serious: Yes (Disabling, Other)
  Sender: FDA-Public Use
  Company Number: FR-GLAXOSMITHKLINE-B0319628A

PATIENT
  Age: 35 Year
  Sex: Male

DRUGS (1)
  1. TRIZIVIR [Suspect]
     Indication: HIV INFECTION
     Dosage: 1UNIT TWICE PER DAY
     Route: 048
     Dates: start: 20040101

REACTIONS (1)
  - TENDONITIS [None]
